FAERS Safety Report 21705127 (Version 1)
Quarter: 2022Q4

REPORT INFORMATION
  Report Type: Spontaneous
  Country: US (occurrence: None)
  Receive Date: 20221208
  Receipt Date: 20221208
  Transmission Date: 20230113
  Serious: Yes (Hospitalization)
  Sender: FDA-Public Use
  Company Number: None

PATIENT
  Age: 38 Year
  Sex: Female
  Weight: 81.2 kg

DRUGS (2)
  1. PONATINIB [Suspect]
     Active Substance: PONATINIB
     Dates: end: 20221129
  2. PREDNISONE [Suspect]
     Active Substance: PREDNISONE
     Dates: end: 20221129

REACTIONS (1)
  - Blood fibrinogen increased [None]

NARRATIVE: CASE EVENT DATE: 20221130
